FAERS Safety Report 8992397 (Version 1)
Quarter: 2012Q4

REPORT INFORMATION
  Report Type: 
  Country: SE (occurrence: SE)
  Receive Date: 20121231
  Receipt Date: 20121231
  Transmission Date: 20130627
  Serious: Yes (Hospitalization)
  Sender: FDA-Public Use
  Company Number: SE-VALEANT-2012VX005820

PATIENT
  Age: 30 Year
  Sex: Female

DRUGS (3)
  1. MESTINON [Suspect]
     Indication: MYASTHENIA GRAVIS
     Route: 065
     Dates: start: 201206
  2. EGAZIL [Concomitant]
     Route: 065
  3. EGAZIL [Concomitant]
     Route: 065

REACTIONS (3)
  - Fatigue [Unknown]
  - Diarrhoea [Unknown]
  - Dyspnoea [Unknown]
